FAERS Safety Report 13246703 (Version 1)
Quarter: 2017Q1

REPORT INFORMATION
  Report Type: Spontaneous
  Country: US (occurrence: US)
  Receive Date: 20170217
  Receipt Date: 20170217
  Transmission Date: 20170428
  Serious: Yes (Death)
  Sender: FDA-Public Use
  Company Number: US-OTSUKA-2016_021739

PATIENT

DRUGS (11)
  1. BUSULFEX [Suspect]
     Active Substance: BUSULFAN
     Indication: STEM CELL TRANSPLANT
     Dosage: UNK, OVER THREE HOURS (QD) (ON DAYS -8 THROUGH -5)
     Route: 042
  2. MELPHALAN [Suspect]
     Active Substance: MELPHALAN
     Indication: STEM CELL TRANSPLANT
     Dosage: 60 MG/M2, QD  (OVER 30 MINUTES ON DAYS -3 AND -2)
     Route: 065
  3. DEXAMETHASONE. [Concomitant]
     Active Substance: DEXAMETHASONE
     Indication: SUPPORTIVE CARE
     Dosage: 8 MG, BID ON DAYS -11 THROUGH -2
     Route: 042
  4. BUSULFEX [Suspect]
     Active Substance: BUSULFAN
     Dosage: 32 MG/M2, OVER 60 MINUTE (TEST DOSE)
     Route: 042
  5. AZACITIDINE. [Suspect]
     Active Substance: AZACITIDINE
     Indication: STEM CELL TRANSPLANT
     Dosage: 15 MG/M2, QD (FROM -11 TO -2 DAY)
     Route: 042
  6. CALCIUM PHOSPHATE [Concomitant]
     Active Substance: CALCIUM PHOSPHATE
     Indication: SUPPORTIVE CARE
     Dosage: UNK, SUPERSATURATED RINSE
     Route: 048
  7. VORINOSTAT [Suspect]
     Active Substance: VORINOSTAT
     Indication: STEM CELL TRANSPLANT
     Dosage: 1000 MG, QD (-11 TO -2 DAYS)
     Route: 048
  8. GEMCITABINE [Suspect]
     Active Substance: GEMCITABINE\GEMCITABINE HYDROCHLORIDE
     Indication: STEM CELL TRANSPLANT
     Dosage: 2775 MG/M2, (ON DAY -3 AND -8)
     Route: 042
  9. PHENYTOIN. [Concomitant]
     Active Substance: PHENYTOIN
     Indication: SUPPORTIVE CARE
     Dosage: 300 TO 600 MG QD, ON DAYS -9 THROUGH -2
     Route: 065
  10. PALIFERMIN [Concomitant]
     Active Substance: PALIFERMIN
     Indication: SUPPORTIVE CARE
     Dosage: UNK
     Route: 048
  11. GLUTAMINE [Concomitant]
     Active Substance: GLUTAMINE
     Indication: SUPPORTIVE CARE
     Dosage: UNK
     Route: 048

REACTIONS (1)
  - Pneumonia respiratory syncytial viral [Fatal]
